FAERS Safety Report 21643488 (Version 2)
Quarter: 2022Q4

REPORT INFORMATION
  Report Type: Other
  Country: IN (occurrence: IN)
  Receive Date: 20221125
  Receipt Date: 20221212
  Transmission Date: 20230113
  Serious: Yes (Death, Hospitalization, Other)
  Sender: FDA-Public Use
  Company Number: IN-ALVOGEN-2022088722

PATIENT
  Age: 65 Year
  Sex: Female

DRUGS (4)
  1. METHOTREXATE [Suspect]
     Active Substance: METHOTREXATE
     Indication: Psoriasis
     Dosage: FOR 10 YEARS
  2. METHOTREXATE [Suspect]
     Active Substance: METHOTREXATE
     Indication: Psoriasis
     Dosage: ERRONEOUS OVERDOSING OF METHOTREXATE, FOR THE LAST 15 DAYS.
  3. FOLIC ACID [Concomitant]
     Active Substance: FOLIC ACID
     Indication: Psoriasis
     Dosage: FOR 10 YEARS
  4. FOLIC ACID [Concomitant]
     Active Substance: FOLIC ACID
     Indication: Psoriasis
     Dosage: FOR THE LAST 15 DAYS.

REACTIONS (16)
  - Toxicity to various agents [Fatal]
  - Haematochezia [Unknown]
  - Coma scale abnormal [Unknown]
  - Thrombocytopenia [Fatal]
  - Myelosuppression [Unknown]
  - Pancytopenia [Unknown]
  - Hepatotoxicity [Unknown]
  - Nephropathy toxic [Unknown]
  - Gastrointestinal toxicity [Unknown]
  - Accidental overdose [Fatal]
  - Psoriasis [Unknown]
  - Pallor [Unknown]
  - Mucosal inflammation [Unknown]
  - Hypotension [Unknown]
  - Dysphagia [Unknown]
  - Faeces discoloured [Unknown]
